FAERS Safety Report 19007048 (Version 1)
Quarter: 2021Q1

REPORT INFORMATION
  Report Type: Spontaneous
  Country: FR (occurrence: FR)
  Receive Date: 20210315
  Receipt Date: 20210315
  Transmission Date: 20210420
  Serious: Yes (Life-Threatening, Hospitalization)
  Sender: FDA-Public Use
  Company Number: FR-B.I. PHARMACEUTICALS,INC./RIDGEFIELD-2021-BI-089777

PATIENT
  Age: 80 Year
  Sex: Female

DRUGS (2)
  1. ATROVENT [Suspect]
     Active Substance: IPRATROPIUM BROMIDE
     Indication: INCORRECT ROUTE OF PRODUCT ADMINISTRATION
     Dosage: 1 DOSAGE FORM 1 IN 1 TOTAL
     Route: 042
     Dates: start: 20210217
  2. BRICANYL [Suspect]
     Active Substance: TERBUTALINE SULFATE
     Indication: INCORRECT ROUTE OF PRODUCT ADMINISTRATION
     Dosage: 1 DOSAGE FORM 1 IN 1 TOTAL
     Route: 042
     Dates: start: 20210217

REACTIONS (6)
  - Incorrect route of product administration [Recovered/Resolved]
  - Heart rate increased [Recovered/Resolved]
  - Atrial fibrillation [Recovered/Resolved]
  - Mydriasis [Recovered/Resolved]
  - Medication error [Recovered/Resolved]
  - Mucosal dryness [Recovered/Resolved]

NARRATIVE: CASE EVENT DATE: 20210217
